FAERS Safety Report 8514379-2 (Version None)
Quarter: 2012Q3

REPORT INFORMATION
  Report Type: 
  Country: None (occurrence: None)
  Receive Date: 20120717
  Receipt Date: 20120128
  Transmission Date: 20120928
  Serious: Yes (Hospitalization)
  Sender: FDA-Public Use
  Company Number: US-JNJCP-30000088527

PATIENT
  Age: 86 Year
  Sex: Female
  Weight: 50 kg

DRUGS (3)
  1. METOPROLOL TARTRATE [Concomitant]
  2. AVEENO BABY CALMING COMFORT LOTION USA ABCCLTUS [Suspect]
     Indication: DRY SKIN
     Dosage: A COUPLE PUMPS ATLEAST THREE TIMES A DAY
     Route: 061
     Dates: start: 20120107
  3. LISINOPRIL [Concomitant]
     Dosage: SINCE ONE YEAR

REACTIONS (2)
  - HYPERSENSITIVITY [None]
  - CELLULITIS [None]
